FAERS Safety Report 8398033-6 (Version None)
Quarter: 2012Q2

REPORT INFORMATION
  Report Type: 
  Country: None (occurrence: None)
  Receive Date: 20120524
  Receipt Date: 20120509
  Transmission Date: 20120825
  Serious: Yes (Death, Hospitalization)
  Sender: FDA-Public Use
  Company Number: 2012MPI00197

PATIENT
  Sex: Female

DRUGS (3)
  1. VALTREX [Concomitant]
  2. COTRIM [Concomitant]
  3. BRENTUXIMAB VEDOTIN (BRENTUXIMAB VEDOITN) INJECTION [Suspect]
     Indication: LYMPHOMA
     Dosage: 1.8 MG/KG, INTRAVENOUS
     Route: 042
     Dates: start: 20110201, end: 20110901

REACTIONS (3)
  - STEM CELL TRANSPLANT [None]
  - SURGICAL PROCEDURE REPEATED [None]
  - BACTERIAL SEPSIS [None]
